FAERS Safety Report 9002249 (Version 2)
Quarter: 2013Q1

REPORT INFORMATION
  Report Type: Spontaneous
  Country: US (occurrence: US)
  Receive Date: 20130107
  Receipt Date: 20130203
  Transmission Date: 20140127
  Serious: No
  Sender: FDA-Public Use
  Company Number: US-ROXANE LABORATORIES, INC.-2012-RO-02587RO

PATIENT
  Age: 73 Year
  Sex: Male

DRUGS (1)
  1. FLUTICASONE [Suspect]
     Indication: RHINITIS ALLERGIC
     Route: 045

REACTIONS (3)
  - Epistaxis [Recovered/Resolved]
  - Drug ineffective [Not Recovered/Not Resolved]
  - Product quality issue [Not Recovered/Not Resolved]
